FAERS Safety Report 6404896-3 (Version None)
Quarter: 2009Q4

REPORT INFORMATION
  Report Type: 
  Country: None (occurrence: None)
  Receive Date: 20091019
  Receipt Date: 20091005
  Transmission Date: 20100525
  Serious: Yes (Hospitalization)
  Sender: FDA-Public Use
  Company Number: IL-PFIZER INC-2008026201

PATIENT
  Age: 51 Year

DRUGS (6)
  1. SUNITINIB MALATE [Suspect]
     Indication: GASTROINTESTINAL STROMAL TUMOUR
     Dosage: 50 MG, 1X/DAY
     Route: 048
     Dates: start: 20080401
  2. CARTIA XT [Concomitant]
  3. METFORMIN [Concomitant]
  4. GLIBENCLAMIDE [Concomitant]
  5. OMEPRAZOLE [Concomitant]
  6. FENTANYL [Concomitant]

REACTIONS (1)
  - URTICARIA [None]
